FAERS Safety Report 9720826 (Version 1)
Quarter: 2013Q4

REPORT INFORMATION
  Report Type: Spontaneous
  Country: MX (occurrence: MX)
  Receive Date: 20131129
  Receipt Date: 20131129
  Transmission Date: 20140711
  Serious: Yes (Other)
  Sender: FDA-Public Use
  Company Number: MX-ROCHE-1310358

PATIENT
  Age: 43 Year
  Sex: 0

DRUGS (9)
  1. AVASTIN [Suspect]
     Indication: BREAST CANCER METASTATIC
     Route: 065
     Dates: start: 20100728, end: 20110106
  2. AVASTIN [Suspect]
     Route: 065
     Dates: start: 20110314
  3. ADRIAMYCIN [Concomitant]
  4. CARBOPLATIN [Concomitant]
     Indication: BREAST CANCER METASTATIC
     Route: 065
     Dates: start: 20100728, end: 20110106
  5. CARBOPLATIN [Concomitant]
     Route: 065
     Dates: start: 20110314
  6. DOCETAXEL [Concomitant]
     Route: 065
     Dates: start: 20100728, end: 20110106
  7. DOCETAXEL [Concomitant]
     Route: 065
     Dates: start: 20110314
  8. TAMOXIFEN [Concomitant]
  9. ZOLEDRONIC ACID [Concomitant]
     Route: 065
     Dates: start: 20110106

REACTIONS (2)
  - Toxicity to various agents [Unknown]
  - Disease progression [Unknown]
